FAERS Safety Report 10172012 (Version 1)
Quarter: 2014Q2

REPORT INFORMATION
  Report Type: Spontaneous
  Country: GB (occurrence: GB)
  Receive Date: 20140515
  Receipt Date: 20140515
  Transmission Date: 20141212
  Serious: Yes (Hospitalization)
  Sender: FDA-Public Use
  Company Number: GB-TAKEDA-2014TUS003775

PATIENT
  Sex: 0

DRUGS (1)
  1. ADENURIC [Suspect]
     Dosage: UNKNOWN
     Route: 065

REACTIONS (1)
  - Ill-defined disorder [Unknown]
